FAERS Safety Report 19995845 (Version 1)
Quarter: 2021Q4

REPORT INFORMATION
  Report Type: Spontaneous
  Country: US (occurrence: US)
  Receive Date: 20211026
  Receipt Date: 20211026
  Transmission Date: 20220303
  Serious: No
  Sender: FDA-Public Use
  Company Number: 2021A766932

PATIENT
  Age: 57 Year

DRUGS (1)
  1. FARXIGA [Suspect]
     Active Substance: DAPAGLIFLOZIN PROPANEDIOL
     Route: 048

REACTIONS (3)
  - Burning sensation [Unknown]
  - Abdominal discomfort [Unknown]
  - Wrong dose [Unknown]

NARRATIVE: CASE EVENT DATE: 20211007
